FAERS Safety Report 11713880 (Version 1)
Quarter: 2015Q4

REPORT INFORMATION
  Report Type: Spontaneous
  Country: JP (occurrence: JP)
  Receive Date: 20151109
  Receipt Date: 20151109
  Transmission Date: 20160304
  Serious: Yes (Hospitalization, Other)
  Sender: FDA-Public Use
  Company Number: PHJP2015JP019215

PATIENT
  Age: 60 Year
  Sex: Female

DRUGS (1)
  1. GLIVEC [Suspect]
     Active Substance: IMATINIB MESYLATE
     Indication: CHRONIC MYELOID LEUKAEMIA
     Dosage: UNK
     Route: 048

REACTIONS (18)
  - Conjunctivochalasis [Unknown]
  - Hernia [Unknown]
  - Lentigo [Unknown]
  - Fatigue [Unknown]
  - White blood cell count decreased [Unknown]
  - Bladder discomfort [Unknown]
  - Dizziness postural [Unknown]
  - Anaemia [Unknown]
  - Oedema [Unknown]
  - Renal disorder [Unknown]
  - Calculus ureteric [Unknown]
  - Intervertebral disc protrusion [Unknown]
  - Dizziness [Unknown]
  - Muscle spasms [Unknown]
  - Platelet count decreased [Unknown]
  - Skin depigmentation [Unknown]
  - Red blood cell count decreased [Unknown]
  - Depression [Unknown]
